FAERS Safety Report 14679961 (Version 1)
Quarter: 2018Q1

REPORT INFORMATION
  Report Type: Spontaneous
  Country: US (occurrence: US)
  Receive Date: 20180326
  Receipt Date: 20180326
  Transmission Date: 20180509
  Serious: Yes (Other)
  Sender: FDA-Public Use
  Company Number: US-PFIZER INC-2018124207

PATIENT
  Age: 69 Year

DRUGS (1)
  1. EMBEDA [Suspect]
     Active Substance: MORPHINE SULFATE\NALTREXONE HYDROCHLORIDE
     Dosage: MORPHINE SULFATE 80 MG/ NALTREXONE HYDROCHLORIDE 3.2 MG

REACTIONS (1)
  - Cataract [Unknown]
